FAERS Safety Report 14914877 (Version 1)
Quarter: 2018Q2

REPORT INFORMATION
  Report Type: Spontaneous
  Country: NZ (occurrence: NZ)
  Receive Date: 20180518
  Receipt Date: 20180518
  Transmission Date: 20180711
  Serious: Yes (Hospitalization)
  Sender: FDA-Public Use
  Company Number: NZ-PURDUE PHARMA-GBR-2018-0055978

PATIENT
  Age: 42 Year
  Sex: Male

DRUGS (6)
  1. ENOXAPARIN [Concomitant]
     Active Substance: ENOXAPARIN
     Dosage: UNK
     Dates: start: 20170914
  2. OXYNORM [Suspect]
     Active Substance: OXYCODONE HYDROCHLORIDE
     Indication: PRODUCT USED FOR UNKNOWN INDICATION
     Dosage: 5 MG, DAILY
     Route: 048
     Dates: start: 20170918, end: 20170918
  3. CEFUROXIME. [Concomitant]
     Active Substance: CEFUROXIME
     Dosage: UNK
     Dates: start: 20170914, end: 20170920
  4. OXYCODONE HYDROCHLORIDE. [Suspect]
     Active Substance: OXYCODONE HYDROCHLORIDE
     Indication: PRODUCT USED FOR UNKNOWN INDICATION
     Dosage: 10 MG, DAILY
     Route: 048
     Dates: start: 20170918, end: 20170918
  5. TRAMADOL. [Concomitant]
     Active Substance: TRAMADOL
     Dosage: UNK
     Dates: start: 20170918
  6. PARACETAMOL [Concomitant]
     Active Substance: ACETAMINOPHEN
     Dosage: UNK
     Dates: start: 20170916

REACTIONS (2)
  - Paraesthesia oral [Recovering/Resolving]
  - Tongue oedema [Recovering/Resolving]

NARRATIVE: CASE EVENT DATE: 20170918
